FAERS Safety Report 6108628-8 (Version None)
Quarter: 2009Q1

REPORT INFORMATION
  Report Type: 
  Country: None (occurrence: None)
  Receive Date: 20090305
  Receipt Date: 20090217
  Transmission Date: 20090719
  Serious: Yes (Hospitalization)
  Sender: FDA-Public Use
  Company Number: 2009S1002798

PATIENT
  Age: 46 Year
  Sex: Male

DRUGS (4)
  1. AZATHIOPRINE [Suspect]
     Indication: COLITIS ULCERATIVE
     Dosage: 50 MG; UNKNOWN; TWICE A DAY
  2. SULFASALAZINE (SULFAZALAZINE) [Concomitant]
  3. MESALAMINE [Concomitant]
  4. PREDNISOLONE [Concomitant]

REACTIONS (5)
  - ACUTE FEBRILE NEUTROPHILIC DERMATOSIS [None]
  - DRUG HYPERSENSITIVITY [None]
  - HYPOTENSION [None]
  - PLEURAL EFFUSION [None]
  - SEPSIS [None]
